FAERS Safety Report 23226542 (Version 3)
Quarter: 2024Q1

REPORT INFORMATION
  Report Type: Spontaneous
  Country: US (occurrence: US)
  Receive Date: 20231124
  Receipt Date: 20240220
  Transmission Date: 20240410
  Serious: Yes (Hospitalization, Other)
  Sender: FDA-Public Use
  Company Number: US-PFIZER INC-202300373312

PATIENT
  Age: 10 Year
  Sex: Male
  Weight: 42.64 kg

DRUGS (2)
  1. R-GENE [Suspect]
     Active Substance: ARGININE HYDROCHLORIDE
     Indication: Diagnostic procedure
     Dosage: UNK
     Route: 042
     Dates: start: 20231109, end: 20231109
  2. R-GENE [Suspect]
     Active Substance: ARGININE HYDROCHLORIDE
     Indication: Growth disorder

REACTIONS (7)
  - Product administration error [Not Recovered/Not Resolved]
  - Infusion site extravasation [Not Recovered/Not Resolved]
  - Wound infection [Not Recovered/Not Resolved]
  - Skin necrosis [Unknown]
  - Hypokinesia [Not Recovered/Not Resolved]
  - Fatigue [Unknown]
  - Peripheral swelling [Not Recovered/Not Resolved]

NARRATIVE: CASE EVENT DATE: 20231101
